FAERS Safety Report 19834647 (Version 2)
Quarter: 2021Q3

REPORT INFORMATION
  Report Type: Report from Study
  Country: None (occurrence: IL)
  Receive Date: 20210915
  Receipt Date: 20210925
  Transmission Date: 20211014
  Serious: Yes (Hospitalization)
  Sender: FDA-Public Use
  Company Number: IL-ABBVIE-21K-082-4077235-00

PATIENT
  Age: 56 Year
  Sex: Male

DRUGS (2)
  1. DUODOPA [Suspect]
     Active Substance: CARBIDOPA\LEVODOPA
     Indication: PARKINSON^S DISEASE
     Dosage: CURRENT: MORNING 3.0 ML, CONTINUOUS DAY 2.2 ML/HOUR, EXTRA 1.5 ML.
     Route: 050
     Dates: start: 20190516
  2. DUODOPA [Suspect]
     Active Substance: CARBIDOPA\LEVODOPA
     Dosage: CURRENT: MORNING 3.0 ML, CONTINUOUS DAY 2.2 ML/HOUR, EXTRA 1.5 ML.
     Route: 050

REACTIONS (2)
  - Cerebrovascular accident [Recovered/Resolved]
  - Hemiparesis [Not Recovered/Not Resolved]

NARRATIVE: CASE EVENT DATE: 20210910
